FAERS Safety Report 14937242 (Version 1)
Quarter: 2018Q2

REPORT INFORMATION
  Report Type: Report from Study
  Country: CN (occurrence: CN)
  Receive Date: 20180525
  Receipt Date: 20180525
  Transmission Date: 20180711
  Serious: Yes (Other)
  Sender: FDA-Public Use
  Company Number: CN-ROCHE-2127558

PATIENT

DRUGS (1)
  1. ATEZOLIZUMAB. [Suspect]
     Active Substance: ATEZOLIZUMAB
     Indication: NON-SMALL CELL LUNG CANCER
     Route: 042

REACTIONS (6)
  - Interstitial lung disease [Recovered/Resolved]
  - Fatigue [Unknown]
  - Cardiac failure [Unknown]
  - Rash [Unknown]
  - Hepatic haematoma [Unknown]
  - Hypoaesthesia [Unknown]
